FAERS Safety Report 23189350 (Version 2)
Quarter: 2023Q4

REPORT INFORMATION
  Report Type: Report from Study
  Country: US (occurrence: US)
  Receive Date: 20231116
  Receipt Date: 20231215
  Transmission Date: 20240109
  Serious: No
  Sender: FDA-Public Use
  Company Number: US-ACADIA PHARMACEUTICALS INC.-ACA-2023-PIM-004887

PATIENT
  Age: 83 Year
  Sex: Female

DRUGS (16)
  1. NUPLAZID [Suspect]
     Active Substance: PIMAVANSERIN TARTRATE
     Indication: Parkinson^s disease
     Dosage: 34 MILLIGRAM, QD
     Route: 048
     Dates: start: 20230929, end: 20231015
  2. NUPLAZID [Suspect]
     Active Substance: PIMAVANSERIN TARTRATE
     Indication: Hallucination
  3. NUPLAZID [Suspect]
     Active Substance: PIMAVANSERIN TARTRATE
     Indication: Hallucination, visual
  4. ACYCLOVIR [Concomitant]
     Active Substance: ACYCLOVIR
     Dosage: UNK
  5. ASPIRIN [Concomitant]
     Active Substance: ASPIRIN
  6. SINEMET [Concomitant]
     Active Substance: CARBIDOPA\LEVODOPA
  7. CLOPIDOGREL [Concomitant]
     Active Substance: CLOPIDOGREL BISULFATE
  8. METOPROLOL [Concomitant]
     Active Substance: METOPROLOL
  9. NITROGLYCERIN [Concomitant]
     Active Substance: NITROGLYCERIN
  10. PRAZOSIN [Concomitant]
     Active Substance: PRAZOSIN
  11. SERTRALINE [Concomitant]
     Active Substance: SERTRALINE HYDROCHLORIDE
  12. TYLENOL [Concomitant]
     Active Substance: ACETAMINOPHEN
  13. RIVASTIGMINE [Concomitant]
     Active Substance: RIVASTIGMINE
  14. QUETIAPINE [Concomitant]
     Active Substance: QUETIAPINE
  15. PANTOPRAZOLE [Concomitant]
     Active Substance: PANTOPRAZOLE
  16. ISOSORBIDE DINITRATE [Concomitant]
     Active Substance: ISOSORBIDE DINITRATE

REACTIONS (5)
  - Urinary tract infection [Unknown]
  - Speech disorder [Recovered/Resolved]
  - Muscular weakness [Recovered/Resolved]
  - Dysstasia [Recovered/Resolved]
  - Gait disturbance [Recovered/Resolved]

NARRATIVE: CASE EVENT DATE: 20231004
